FAERS Safety Report 18975814 (Version 2)
Quarter: 2021Q2

REPORT INFORMATION
  Report Type: Spontaneous
  Country: IT (occurrence: IT)
  Receive Date: 20210305
  Receipt Date: 20210604
  Transmission Date: 20210717
  Serious: Yes (Death)
  Sender: FDA-Public Use
  Company Number: IT-ALSI-2021000058

PATIENT
  Age: 80 Year
  Sex: Male

DRUGS (1)
  1. OXYGEN. [Suspect]
     Active Substance: OXYGEN
     Indication: COVID-19
     Route: 055
     Dates: end: 20201109

REACTIONS (2)
  - Asphyxia [Fatal]
  - Accidental underdose [Fatal]
